FAERS Safety Report 12495839 (Version 1)
Quarter: 2016Q2

REPORT INFORMATION
  Report Type: Spontaneous
  Country: HR (occurrence: HR)
  Receive Date: 20160624
  Receipt Date: 20160624
  Transmission Date: 20160815
  Serious: Yes (Other)
  Sender: FDA-Public Use
  Company Number: HR-JNJFOC-20160613953

PATIENT
  Age: 32 Year
  Sex: Male

DRUGS (4)
  1. METHOTREXATE [Suspect]
     Active Substance: METHOTREXATE
     Indication: PSORIATIC ARTHROPATHY
     Dosage: FOR A PERIOD OF 5 YEARS AT LOW DOSE
     Route: 065
  2. INFLIXIMAB, RECOMBINANT [Suspect]
     Active Substance: INFLIXIMAB
     Indication: PSORIATIC ARTHROPATHY
     Route: 042
  3. METHOTREXATE [Suspect]
     Active Substance: METHOTREXATE
     Indication: PSORIASIS
     Dosage: FOR A PERIOD OF 5 YEARS AT LOW DOSE
     Route: 065
  4. INFLIXIMAB, RECOMBINANT [Suspect]
     Active Substance: INFLIXIMAB
     Indication: PSORIASIS
     Route: 042

REACTIONS (5)
  - Polyarthritis [Recovered/Resolved]
  - Drug ineffective [Unknown]
  - Psoriasis [Recovered/Resolved]
  - Staphylococcal scalded skin syndrome [Recovered/Resolved]
  - Crohn^s disease [Recovered/Resolved]
